FAERS Safety Report 9372506 (Version 2)
Quarter: 2013Q3

REPORT INFORMATION
  Report Type: Spontaneous
  Country: DE (occurrence: DE)
  Receive Date: 20130627
  Receipt Date: 20130711
  Transmission Date: 20140515
  Serious: Yes (Life-Threatening, Hospitalization)
  Sender: FDA-Public Use
  Company Number: DE-BAYER-2013-078048

PATIENT
  Age: 51 Year
  Sex: Female
  Weight: 83.9 kg

DRUGS (1)
  1. NEXAVAR [Suspect]
     Indication: ACUTE MYELOID LEUKAEMIA
     Dosage: 400 MG, BID
     Route: 048
     Dates: start: 20130613, end: 20130624

REACTIONS (2)
  - Acute hepatic failure [Recovered/Resolved]
  - Off label use [None]
